FAERS Safety Report 8519565-3 (Version None)
Quarter: 2012Q3

REPORT INFORMATION
  Report Type: 
  Country: None (occurrence: None)
  Receive Date: 20120718
  Receipt Date: 20120709
  Transmission Date: 20120928
  Serious: Yes (Congenital Anomaly)
  Sender: FDA-Public Use
  Company Number: DE-TEVA-347665GER

PATIENT
  Sex: Female

DRUGS (5)
  1. AMOXICILLIN [Concomitant]
     Route: 064
  2. FOLIC ACID [Concomitant]
     Route: 064
  3. CIPROFLOXACIN [Concomitant]
     Route: 064
  4. FLUOXETINE HCL [Suspect]
     Route: 064
  5. ACETAMINOPHEN [Concomitant]
     Route: 064

REACTIONS (3)
  - SPINA BIFIDA [None]
  - ARNOLD-CHIARI MALFORMATION [None]
  - CONGENITAL HYDROCEPHALUS [None]
